FAERS Safety Report 7199770-1 (Version None)
Quarter: 2010Q4

REPORT INFORMATION
  Report Type: 
  Country: None (occurrence: None)
  Receive Date: 20101228
  Receipt Date: 20100224
  Transmission Date: 20110411
  Serious: No
  Sender: FDA-Public Use
  Company Number: US-KINGPHARMUSA00001-K201000220

PATIENT
  Sex: Female

DRUGS (1)
  1. CORGARD [Suspect]
     Dosage: UNK
     Route: 048
     Dates: start: 19900101

REACTIONS (1)
  - MALAISE [None]
